FAERS Safety Report 23472485 (Version 3)
Quarter: 2025Q3

REPORT INFORMATION
  Report Type: Spontaneous
  Country: CA (occurrence: CA)
  Receive Date: 20240202
  Receipt Date: 20250717
  Transmission Date: 20251020
  Serious: Yes (Hospitalization, Other)
  Sender: MYLAN
  Company Number: CA-MYLANLABS-2024M1008514

PATIENT
  Age: 22 Year
  Sex: Female

DRUGS (200)
  1. VALPROIC ACID [Suspect]
     Active Substance: VALPROIC ACID
     Indication: Schizoaffective disorder
  2. VALPROIC ACID [Suspect]
     Active Substance: VALPROIC ACID
     Indication: Mood altered
     Route: 065
  3. VALPROIC ACID [Suspect]
     Active Substance: VALPROIC ACID
     Route: 065
  4. VALPROIC ACID [Suspect]
     Active Substance: VALPROIC ACID
  5. ZIPRASIDONE [Suspect]
     Active Substance: ZIPRASIDONE
     Indication: Product used for unknown indication
  6. ZIPRASIDONE [Suspect]
     Active Substance: ZIPRASIDONE
     Route: 065
  7. ZIPRASIDONE [Suspect]
     Active Substance: ZIPRASIDONE
     Route: 065
  8. ZIPRASIDONE [Suspect]
     Active Substance: ZIPRASIDONE
  9. ABILIFY [Suspect]
     Active Substance: ARIPIPRAZOLE
     Indication: Schizophrenia
  10. ABILIFY [Suspect]
     Active Substance: ARIPIPRAZOLE
     Indication: Schizoaffective disorder
     Route: 065
  11. ABILIFY [Suspect]
     Active Substance: ARIPIPRAZOLE
     Route: 065
  12. ABILIFY [Suspect]
     Active Substance: ARIPIPRAZOLE
  13. ABILIFY [Suspect]
     Active Substance: ARIPIPRAZOLE
     Indication: Schizophrenia
  14. ABILIFY [Suspect]
     Active Substance: ARIPIPRAZOLE
     Indication: Schizoaffective disorder
     Route: 065
  15. ABILIFY [Suspect]
     Active Substance: ARIPIPRAZOLE
     Route: 065
  16. ABILIFY [Suspect]
     Active Substance: ARIPIPRAZOLE
  17. OLANZAPINE [Suspect]
     Active Substance: OLANZAPINE
     Indication: Schizophrenia
  18. OLANZAPINE [Suspect]
     Active Substance: OLANZAPINE
     Indication: Schizoaffective disorder
  19. OLANZAPINE [Suspect]
     Active Substance: OLANZAPINE
     Route: 065
  20. OLANZAPINE [Suspect]
     Active Substance: OLANZAPINE
     Route: 065
  21. OLANZAPINE [Suspect]
     Active Substance: OLANZAPINE
  22. OLANZAPINE [Suspect]
     Active Substance: OLANZAPINE
  23. OLANZAPINE [Suspect]
     Active Substance: OLANZAPINE
     Route: 065
  24. OLANZAPINE [Suspect]
     Active Substance: OLANZAPINE
     Route: 065
  25. OLANZAPINE [Suspect]
     Active Substance: OLANZAPINE
     Indication: Schizophrenia
     Dosage: 5 MILLIGRAM, QD (1 EVERY 1 DAYS)
     Route: 065
  26. OLANZAPINE [Suspect]
     Active Substance: OLANZAPINE
     Indication: Schizoaffective disorder
     Dosage: 5 MILLIGRAM, QD (1 EVERY 1 DAYS)
  27. OLANZAPINE [Suspect]
     Active Substance: OLANZAPINE
     Dosage: 5 MILLIGRAM, QD (1 EVERY 1 DAYS)
  28. OLANZAPINE [Suspect]
     Active Substance: OLANZAPINE
     Dosage: 5 MILLIGRAM, QD (1 EVERY 1 DAYS)
     Route: 065
  29. OLANZAPINE [Suspect]
     Active Substance: OLANZAPINE
     Dosage: 1 DOSAGE FORM, QD (1 EVERY 1 DAYS)
     Route: 065
  30. OLANZAPINE [Suspect]
     Active Substance: OLANZAPINE
     Dosage: 1 DOSAGE FORM, QD (1 EVERY 1 DAYS)
     Route: 065
  31. OLANZAPINE [Suspect]
     Active Substance: OLANZAPINE
     Dosage: 1 DOSAGE FORM, QD (1 EVERY 1 DAYS)
  32. OLANZAPINE [Suspect]
     Active Substance: OLANZAPINE
     Dosage: 1 DOSAGE FORM, QD (1 EVERY 1 DAYS)
  33. OLANZAPINE [Suspect]
     Active Substance: OLANZAPINE
     Dosage: 5 MILLIGRAM, QD (1 EVERY 1 DAYS)
     Route: 065
  34. OLANZAPINE [Suspect]
     Active Substance: OLANZAPINE
     Dosage: 5 MILLIGRAM, QD (1 EVERY 1 DAYS)
     Route: 065
  35. OLANZAPINE [Suspect]
     Active Substance: OLANZAPINE
     Dosage: 5 MILLIGRAM, QD (1 EVERY 1 DAYS)
  36. OLANZAPINE [Suspect]
     Active Substance: OLANZAPINE
     Dosage: 5 MILLIGRAM, QD (1 EVERY 1 DAYS)
  37. OLANZAPINE [Suspect]
     Active Substance: OLANZAPINE
     Route: 065
  38. OLANZAPINE [Suspect]
     Active Substance: OLANZAPINE
  39. OLANZAPINE [Suspect]
     Active Substance: OLANZAPINE
  40. OLANZAPINE [Suspect]
     Active Substance: OLANZAPINE
     Route: 065
  41. OLANZAPINE [Suspect]
     Active Substance: OLANZAPINE
     Indication: Schizophrenia
  42. OLANZAPINE [Suspect]
     Active Substance: OLANZAPINE
     Indication: Schizoaffective disorder
  43. OLANZAPINE [Suspect]
     Active Substance: OLANZAPINE
     Route: 065
  44. OLANZAPINE [Suspect]
     Active Substance: OLANZAPINE
     Route: 065
  45. OLANZAPINE [Suspect]
     Active Substance: OLANZAPINE
     Dosage: 1 DOSAGE FORM, QD (1 EVERY 1 DAY)
     Route: 065
  46. OLANZAPINE [Suspect]
     Active Substance: OLANZAPINE
     Dosage: 1 DOSAGE FORM, QD (1 EVERY 1 DAY)
     Route: 065
  47. OLANZAPINE [Suspect]
     Active Substance: OLANZAPINE
     Dosage: 1 DOSAGE FORM, QD (1 EVERY 1 DAY)
  48. OLANZAPINE [Suspect]
     Active Substance: OLANZAPINE
     Dosage: 1 DOSAGE FORM, QD (1 EVERY 1 DAY)
  49. OLANZAPINE [Suspect]
     Active Substance: OLANZAPINE
     Route: 065
  50. OLANZAPINE [Suspect]
     Active Substance: OLANZAPINE
  51. OLANZAPINE [Suspect]
     Active Substance: OLANZAPINE
  52. OLANZAPINE [Suspect]
     Active Substance: OLANZAPINE
     Route: 065
  53. OLANZAPINE [Suspect]
     Active Substance: OLANZAPINE
     Dosage: 5 MILLIGRAM, QD (1 EVERY 1 DAY)
  54. OLANZAPINE [Suspect]
     Active Substance: OLANZAPINE
     Dosage: 5 MILLIGRAM, QD (1 EVERY 1 DAY)
  55. OLANZAPINE [Suspect]
     Active Substance: OLANZAPINE
     Dosage: 5 MILLIGRAM, QD (1 EVERY 1 DAY)
     Route: 065
  56. OLANZAPINE [Suspect]
     Active Substance: OLANZAPINE
     Dosage: 5 MILLIGRAM, QD (1 EVERY 1 DAY)
     Route: 065
  57. ARIPIPRAZOLE [Suspect]
     Active Substance: ARIPIPRAZOLE
     Indication: Schizoaffective disorder
  58. ARIPIPRAZOLE [Suspect]
     Active Substance: ARIPIPRAZOLE
     Route: 030
  59. ARIPIPRAZOLE [Suspect]
     Active Substance: ARIPIPRAZOLE
     Route: 030
  60. ARIPIPRAZOLE [Suspect]
     Active Substance: ARIPIPRAZOLE
  61. BENZTROPINE [Suspect]
     Active Substance: BENZTROPINE
     Indication: Schizophrenia
  62. BENZTROPINE [Suspect]
     Active Substance: BENZTROPINE
     Indication: Schizoaffective disorder
     Route: 065
  63. BENZTROPINE [Suspect]
     Active Substance: BENZTROPINE
     Route: 065
  64. BENZTROPINE [Suspect]
     Active Substance: BENZTROPINE
  65. LAMOTRIGINE [Suspect]
     Active Substance: LAMOTRIGINE
     Indication: Schizophrenia
  66. LAMOTRIGINE [Suspect]
     Active Substance: LAMOTRIGINE
     Indication: Affective disorder
     Route: 065
  67. LAMOTRIGINE [Suspect]
     Active Substance: LAMOTRIGINE
     Indication: Mood altered
     Route: 065
  68. LAMOTRIGINE [Suspect]
     Active Substance: LAMOTRIGINE
     Indication: Schizoaffective disorder
  69. LITHIUM [Suspect]
     Active Substance: LITHIUM
     Indication: Schizophrenia
  70. LITHIUM [Suspect]
     Active Substance: LITHIUM
     Indication: Affective disorder
     Route: 065
  71. LITHIUM [Suspect]
     Active Substance: LITHIUM
     Indication: Mood altered
     Route: 065
  72. LITHIUM [Suspect]
     Active Substance: LITHIUM
  73. QUETIAPINE FUMARATE [Suspect]
     Active Substance: QUETIAPINE FUMARATE
     Indication: Schizoaffective disorder
  74. QUETIAPINE FUMARATE [Suspect]
     Active Substance: QUETIAPINE FUMARATE
     Indication: Schizophrenia
  75. QUETIAPINE FUMARATE [Suspect]
     Active Substance: QUETIAPINE FUMARATE
     Route: 065
  76. QUETIAPINE FUMARATE [Suspect]
     Active Substance: QUETIAPINE FUMARATE
     Route: 065
  77. QUETIAPINE FUMARATE [Suspect]
     Active Substance: QUETIAPINE FUMARATE
     Dosage: 5 MILLIGRAM, QD ( 1 EVERY 1 DAYS)
  78. QUETIAPINE FUMARATE [Suspect]
     Active Substance: QUETIAPINE FUMARATE
     Dosage: 5 MILLIGRAM, QD ( 1 EVERY 1 DAYS)
  79. QUETIAPINE FUMARATE [Suspect]
     Active Substance: QUETIAPINE FUMARATE
     Dosage: 5 MILLIGRAM, QD ( 1 EVERY 1 DAYS)
     Route: 048
  80. QUETIAPINE FUMARATE [Suspect]
     Active Substance: QUETIAPINE FUMARATE
     Dosage: 5 MILLIGRAM, QD ( 1 EVERY 1 DAYS)
     Route: 048
  81. LOXAPINE [Suspect]
     Active Substance: LOXAPINE
     Indication: Schizophrenia
     Dosage: 50 MILLIGRAM, QD (1 EVERY 1 DAYS)
     Route: 065
  82. LOXAPINE [Suspect]
     Active Substance: LOXAPINE
     Indication: Schizoaffective disorder
     Dosage: 50 MILLIGRAM, QD (1 EVERY 1 DAYS)
  83. LOXAPINE [Suspect]
     Active Substance: LOXAPINE
     Dosage: 50 MILLIGRAM, QD (1 EVERY 1 DAYS)
  84. LOXAPINE [Suspect]
     Active Substance: LOXAPINE
     Dosage: 50 MILLIGRAM, QD (1 EVERY 1 DAYS)
     Route: 065
  85. LOXAPINE [Suspect]
     Active Substance: LOXAPINE
     Route: 065
  86. LOXAPINE [Suspect]
     Active Substance: LOXAPINE
  87. LOXAPINE [Suspect]
     Active Substance: LOXAPINE
  88. LOXAPINE [Suspect]
     Active Substance: LOXAPINE
     Route: 065
  89. QUETIAPINE FUMARATE [Suspect]
     Active Substance: QUETIAPINE FUMARATE
     Indication: Schizoaffective disorder
  90. QUETIAPINE FUMARATE [Suspect]
     Active Substance: QUETIAPINE FUMARATE
  91. QUETIAPINE FUMARATE [Suspect]
     Active Substance: QUETIAPINE FUMARATE
     Route: 030
  92. QUETIAPINE FUMARATE [Suspect]
     Active Substance: QUETIAPINE FUMARATE
     Route: 030
  93. QUETIAPINE FUMARATE [Suspect]
     Active Substance: QUETIAPINE FUMARATE
  94. QUETIAPINE FUMARATE [Suspect]
     Active Substance: QUETIAPINE FUMARATE
  95. QUETIAPINE FUMARATE [Suspect]
     Active Substance: QUETIAPINE FUMARATE
     Route: 065
  96. QUETIAPINE FUMARATE [Suspect]
     Active Substance: QUETIAPINE FUMARATE
     Route: 065
  97. QUETIAPINE FUMARATE [Suspect]
     Active Substance: QUETIAPINE FUMARATE
     Indication: Schizophrenia
  98. QUETIAPINE FUMARATE [Suspect]
     Active Substance: QUETIAPINE FUMARATE
     Indication: Schizoaffective disorder
  99. QUETIAPINE FUMARATE [Suspect]
     Active Substance: QUETIAPINE FUMARATE
     Route: 065
  100. QUETIAPINE FUMARATE [Suspect]
     Active Substance: QUETIAPINE FUMARATE
     Route: 065
  101. QUETIAPINE FUMARATE [Suspect]
     Active Substance: QUETIAPINE FUMARATE
     Dosage: 5 MILLIGRAM, QD (1 EVERY 1 DAYS)
  102. QUETIAPINE FUMARATE [Suspect]
     Active Substance: QUETIAPINE FUMARATE
     Dosage: 5 MILLIGRAM, QD (1 EVERY 1 DAYS)
  103. QUETIAPINE FUMARATE [Suspect]
     Active Substance: QUETIAPINE FUMARATE
     Dosage: 5 MILLIGRAM, QD (1 EVERY 1 DAYS)
     Route: 048
  104. QUETIAPINE FUMARATE [Suspect]
     Active Substance: QUETIAPINE FUMARATE
     Dosage: 5 MILLIGRAM, QD (1 EVERY 1 DAYS)
     Route: 048
  105. QUETIAPINE FUMARATE [Suspect]
     Active Substance: QUETIAPINE FUMARATE
  106. QUETIAPINE FUMARATE [Suspect]
     Active Substance: QUETIAPINE FUMARATE
     Route: 048
  107. QUETIAPINE FUMARATE [Suspect]
     Active Substance: QUETIAPINE FUMARATE
  108. QUETIAPINE FUMARATE [Suspect]
     Active Substance: QUETIAPINE FUMARATE
     Route: 048
  109. RISPERDAL CONSTA [Suspect]
     Active Substance: RISPERIDONE
     Indication: Schizophrenia
     Route: 030
  110. RISPERDAL CONSTA [Suspect]
     Active Substance: RISPERIDONE
     Indication: Schizoaffective disorder
  111. RISPERDAL CONSTA [Suspect]
     Active Substance: RISPERIDONE
  112. RISPERDAL CONSTA [Suspect]
     Active Substance: RISPERIDONE
     Route: 030
  113. RISPERDAL CONSTA [Suspect]
     Active Substance: RISPERIDONE
     Route: 065
  114. RISPERDAL CONSTA [Suspect]
     Active Substance: RISPERIDONE
  115. RISPERDAL CONSTA [Suspect]
     Active Substance: RISPERIDONE
  116. RISPERDAL CONSTA [Suspect]
     Active Substance: RISPERIDONE
     Route: 065
  117. RISPERDAL CONSTA [Suspect]
     Active Substance: RISPERIDONE
     Indication: Schizophrenia
  118. RISPERDAL CONSTA [Suspect]
     Active Substance: RISPERIDONE
     Indication: Schizoaffective disorder
  119. RISPERDAL CONSTA [Suspect]
     Active Substance: RISPERIDONE
     Route: 030
  120. RISPERDAL CONSTA [Suspect]
     Active Substance: RISPERIDONE
     Route: 030
  121. RISPERDAL CONSTA [Suspect]
     Active Substance: RISPERIDONE
  122. RISPERDAL CONSTA [Suspect]
     Active Substance: RISPERIDONE
  123. RISPERDAL CONSTA [Suspect]
     Active Substance: RISPERIDONE
     Route: 065
  124. RISPERDAL CONSTA [Suspect]
     Active Substance: RISPERIDONE
     Route: 065
  125. RISPERIDONE [Suspect]
     Active Substance: RISPERIDONE
     Indication: Schizophrenia
     Route: 030
  126. RISPERIDONE [Suspect]
     Active Substance: RISPERIDONE
     Indication: Schizoaffective disorder
  127. RISPERIDONE [Suspect]
     Active Substance: RISPERIDONE
  128. RISPERIDONE [Suspect]
     Active Substance: RISPERIDONE
     Route: 030
  129. RISPERIDONE [Suspect]
     Active Substance: RISPERIDONE
     Route: 030
  130. RISPERIDONE [Suspect]
     Active Substance: RISPERIDONE
  131. RISPERIDONE [Suspect]
     Active Substance: RISPERIDONE
  132. RISPERIDONE [Suspect]
     Active Substance: RISPERIDONE
     Route: 030
  133. RISPERIDONE [Suspect]
     Active Substance: RISPERIDONE
     Indication: Schizophrenia
  134. RISPERIDONE [Suspect]
     Active Substance: RISPERIDONE
     Indication: Schizoaffective disorder
     Route: 030
  135. RISPERIDONE [Suspect]
     Active Substance: RISPERIDONE
     Route: 030
  136. RISPERIDONE [Suspect]
     Active Substance: RISPERIDONE
  137. BENZTROPINE MESYLATE [Suspect]
     Active Substance: BENZTROPINE MESYLATE
     Indication: Schizophrenia
  138. BENZTROPINE MESYLATE [Suspect]
     Active Substance: BENZTROPINE MESYLATE
     Indication: Schizoaffective disorder
     Route: 065
  139. BENZTROPINE MESYLATE [Suspect]
     Active Substance: BENZTROPINE MESYLATE
     Route: 065
  140. BENZTROPINE MESYLATE [Suspect]
     Active Substance: BENZTROPINE MESYLATE
  141. BENZTROPINE MESYLATE [Suspect]
     Active Substance: BENZTROPINE MESYLATE
     Indication: Schizophrenia
  142. BENZTROPINE MESYLATE [Suspect]
     Active Substance: BENZTROPINE MESYLATE
     Indication: Schizoaffective disorder
     Route: 065
  143. BENZTROPINE MESYLATE [Suspect]
     Active Substance: BENZTROPINE MESYLATE
     Route: 065
  144. BENZTROPINE MESYLATE [Suspect]
     Active Substance: BENZTROPINE MESYLATE
  145. ZIPRASIDONE HYDROCHLORIDE [Suspect]
     Active Substance: ZIPRASIDONE HYDROCHLORIDE
     Indication: Product used for unknown indication
  146. ZIPRASIDONE HYDROCHLORIDE [Suspect]
     Active Substance: ZIPRASIDONE HYDROCHLORIDE
     Route: 065
  147. ZIPRASIDONE HYDROCHLORIDE [Suspect]
     Active Substance: ZIPRASIDONE HYDROCHLORIDE
     Route: 065
  148. ZIPRASIDONE HYDROCHLORIDE [Suspect]
     Active Substance: ZIPRASIDONE HYDROCHLORIDE
  149. ZYPREXA ZYDIS [Suspect]
     Active Substance: OLANZAPINE
     Indication: Product used for unknown indication
  150. ZYPREXA ZYDIS [Suspect]
     Active Substance: OLANZAPINE
     Route: 048
  151. ZYPREXA ZYDIS [Suspect]
     Active Substance: OLANZAPINE
     Route: 048
  152. ZYPREXA ZYDIS [Suspect]
     Active Substance: OLANZAPINE
  153. RISPERIDONE [Suspect]
     Active Substance: RISPERIDONE
     Indication: Schizophrenia
  154. RISPERIDONE [Suspect]
     Active Substance: RISPERIDONE
     Indication: Schizoaffective disorder
     Route: 065
  155. RISPERIDONE [Suspect]
     Active Substance: RISPERIDONE
     Route: 065
  156. RISPERIDONE [Suspect]
     Active Substance: RISPERIDONE
  157. ARIPIPRAZOLE [Suspect]
     Active Substance: ARIPIPRAZOLE
     Indication: Schizophrenia
  158. ARIPIPRAZOLE [Suspect]
     Active Substance: ARIPIPRAZOLE
     Indication: Schizoaffective disorder
  159. ARIPIPRAZOLE [Suspect]
     Active Substance: ARIPIPRAZOLE
     Route: 030
  160. ARIPIPRAZOLE [Suspect]
     Active Substance: ARIPIPRAZOLE
     Route: 030
  161. ARIPIPRAZOLE [Suspect]
     Active Substance: ARIPIPRAZOLE
  162. ARIPIPRAZOLE [Suspect]
     Active Substance: ARIPIPRAZOLE
  163. ARIPIPRAZOLE [Suspect]
     Active Substance: ARIPIPRAZOLE
     Route: 048
  164. ARIPIPRAZOLE [Suspect]
     Active Substance: ARIPIPRAZOLE
     Route: 048
  165. OLANZAPINE [Suspect]
     Active Substance: OLANZAPINE
     Indication: Schizophrenia
  166. OLANZAPINE [Suspect]
     Active Substance: OLANZAPINE
     Indication: Schizoaffective disorder
     Route: 048
  167. OLANZAPINE [Suspect]
     Active Substance: OLANZAPINE
     Route: 048
  168. OLANZAPINE [Suspect]
     Active Substance: OLANZAPINE
  169. OLANZAPINE [Suspect]
     Active Substance: OLANZAPINE
     Indication: Schizophrenia
     Route: 048
  170. OLANZAPINE [Suspect]
     Active Substance: OLANZAPINE
     Indication: Schizoaffective disorder
  171. OLANZAPINE [Suspect]
     Active Substance: OLANZAPINE
  172. OLANZAPINE [Suspect]
     Active Substance: OLANZAPINE
     Route: 048
  173. OLANZAPINE [Suspect]
     Active Substance: OLANZAPINE
     Route: 048
  174. OLANZAPINE [Suspect]
     Active Substance: OLANZAPINE
  175. OLANZAPINE [Suspect]
     Active Substance: OLANZAPINE
  176. OLANZAPINE [Suspect]
     Active Substance: OLANZAPINE
     Route: 048
  177. VALPROATE SODIUM [Suspect]
     Active Substance: VALPROATE SODIUM
     Indication: Mood altered
  178. VALPROATE SODIUM [Suspect]
     Active Substance: VALPROATE SODIUM
     Indication: Schizoaffective disorder
     Route: 065
  179. VALPROATE SODIUM [Suspect]
     Active Substance: VALPROATE SODIUM
     Route: 065
  180. VALPROATE SODIUM [Suspect]
     Active Substance: VALPROATE SODIUM
  181. VALPROATE SODIUM [Concomitant]
     Active Substance: VALPROATE SODIUM
     Indication: Schizophrenia
  182. VALPROATE SODIUM [Concomitant]
     Active Substance: VALPROATE SODIUM
     Route: 065
  183. VALPROATE SODIUM [Concomitant]
     Active Substance: VALPROATE SODIUM
     Route: 065
  184. VALPROATE SODIUM [Concomitant]
     Active Substance: VALPROATE SODIUM
  185. LAMOTRIGINE [Concomitant]
     Active Substance: LAMOTRIGINE
     Indication: Schizophrenia
  186. LAMOTRIGINE [Concomitant]
     Active Substance: LAMOTRIGINE
     Indication: Mood altered
  187. LAMOTRIGINE [Concomitant]
     Active Substance: LAMOTRIGINE
     Indication: Schizoaffective disorder
     Route: 048
  188. LAMOTRIGINE [Concomitant]
     Active Substance: LAMOTRIGINE
     Route: 048
  189. LAMOTRIGINE [Concomitant]
     Active Substance: LAMOTRIGINE
  190. LAMOTRIGINE [Concomitant]
     Active Substance: LAMOTRIGINE
  191. LAMOTRIGINE [Concomitant]
     Active Substance: LAMOTRIGINE
     Route: 065
  192. LAMOTRIGINE [Concomitant]
     Active Substance: LAMOTRIGINE
     Route: 065
  193. LITHIUM [Concomitant]
     Active Substance: LITHIUM
     Indication: Schizophrenia
  194. LITHIUM [Concomitant]
     Active Substance: LITHIUM
     Indication: Affective disorder
     Route: 065
  195. LITHIUM [Concomitant]
     Active Substance: LITHIUM
     Indication: Mood altered
     Route: 065
  196. LITHIUM [Concomitant]
     Active Substance: LITHIUM
  197. LITHIUM [Concomitant]
     Active Substance: LITHIUM
     Indication: Schizophrenia
  198. LITHIUM [Concomitant]
     Active Substance: LITHIUM
     Indication: Affective disorder
     Route: 065
  199. LITHIUM [Concomitant]
     Active Substance: LITHIUM
     Indication: Mood altered
     Route: 065
  200. LITHIUM [Concomitant]
     Active Substance: LITHIUM

REACTIONS (3)
  - Oculogyric crisis [Recovered/Resolved]
  - Disease recurrence [Recovered/Resolved]
  - Product use in unapproved indication [Unknown]
